FAERS Safety Report 6227118-5 (Version None)
Quarter: 2009Q2

REPORT INFORMATION
  Report Type: 
  Country: None (occurrence: None)
  Receive Date: 20090612
  Receipt Date: 20090528
  Transmission Date: 20091009
  Serious: No
  Sender: FDA-Public Use
  Company Number: US-ABBOTT-09P-163-0576565-00

PATIENT
  Sex: Male
  Weight: 120.76 kg

DRUGS (1)
  1. HUMIRA [Suspect]
     Indication: CROHN'S DISEASE
     Route: 058
     Dates: start: 20070701, end: 20090429

REACTIONS (5)
  - ARTHRALGIA [None]
  - ASTHENIA [None]
  - DIVERTICULITIS [None]
  - FATIGUE [None]
  - INFLUENZA LIKE ILLNESS [None]
